FAERS Safety Report 5441975-1 (Version None)
Quarter: 2007Q3

REPORT INFORMATION
  Report Type: 
  Country: None (occurrence: None)
  Receive Date: 20070904
  Receipt Date: 20070824
  Transmission Date: 20080115
  Serious: Yes (Hospitalization)
  Sender: FDA-Public Use
  Company Number: B0483952A

PATIENT
  Age: 51 Year
  Sex: Female
  Weight: 38 kg

DRUGS (10)
  1. ZOVIRAX [Suspect]
     Indication: HERPES SIMPLEX
     Dosage: 175MG PER DAY
     Route: 042
     Dates: start: 20070809, end: 20070809
  2. VALTREX [Suspect]
     Indication: HERPES SIMPLEX
     Dosage: 500MG PER DAY
     Route: 048
     Dates: start: 20070809, end: 20070809
  3. FUROSEMIDE [Concomitant]
     Route: 048
  4. TRICHLORMETHIAZIDE [Concomitant]
     Dosage: 2MG TWICE PER DAY
     Route: 048
  5. OLMETEC [Concomitant]
     Dosage: 20MG PER DAY
     Route: 048
  6. ADALAT [Concomitant]
     Dosage: 1 PER DAY
     Route: 048
  7. SIMAVASTATIN [Concomitant]
     Dosage: 5MG PER DAY
     Route: 048
     Dates: start: 20060405
  8. SODIUM BICARBONATE [Concomitant]
     Indication: METABOLIC ACIDOSIS
     Dosage: 2G PER DAY
     Route: 048
     Dates: start: 20060920
  9. CALTAN [Concomitant]
     Indication: BLOOD PHOSPHORUS DECREASED
     Dosage: 18U PER DAY
     Route: 048
     Dates: start: 20070725
  10. DIART [Concomitant]
     Dosage: 60MG PER DAY
     Route: 048
     Dates: start: 20070711

REACTIONS (12)
  - CONDITION AGGRAVATED [None]
  - DELIRIUM [None]
  - DISORIENTATION [None]
  - DYSARTHRIA [None]
  - ENCEPHALOPATHY [None]
  - GAIT DISTURBANCE [None]
  - HAEMODIALYSIS [None]
  - HERPES SIMPLEX [None]
  - MUSCULAR WEAKNESS [None]
  - PORIOMANIA [None]
  - RESTLESSNESS [None]
  - STUPOR [None]
